FAERS Safety Report 9320583 (Version 2)
Quarter: 2013Q2

REPORT INFORMATION
  Report Type: Spontaneous
  Country: AU (occurrence: AU)
  Receive Date: 20130531
  Receipt Date: 20130606
  Transmission Date: 20140414
  Serious: Yes (Hospitalization, Disabling, Other)
  Sender: FDA-Public Use
  Company Number: AU-ROCHE-1230627

PATIENT
  Age: 73 Year
  Sex: Male

DRUGS (6)
  1. LUCENTIS [Suspect]
     Indication: AGE-RELATED MACULAR DEGENERATION
     Route: 050
     Dates: start: 2010
  2. LUCENTIS [Suspect]
     Route: 050
     Dates: start: 2011
  3. TARKA [Concomitant]
  4. LIPITOR [Concomitant]
  5. ASPIRIN [Concomitant]
  6. DIABEX [Concomitant]

REACTIONS (2)
  - Cerebrovascular accident [Unknown]
  - Fall [Unknown]
